FAERS Safety Report 6871097-4 (Version None)
Quarter: 2010Q3

REPORT INFORMATION
  Report Type: 
  Country: None (occurrence: None)
  Receive Date: 20100723
  Receipt Date: 20100709
  Transmission Date: 20110219
  Serious: Yes (Hospitalization, Other)
  Sender: FDA-Public Use
  Company Number: GB-RANBAXY-2010RR-35995

PATIENT
  Age: 21 Year
  Sex: Male
  Weight: 40 kg

DRUGS (7)
  1. PARACETAMOL [Suspect]
     Indication: PROCEDURAL PAIN
     Dosage: 1 G, QID
     Dates: start: 20100525, end: 20100527
  2. PARACETAMOL [Suspect]
     Route: 042
  3. BISOPROLOL FUMARATE [Concomitant]
  4. AMPICILLIN SODIUM/SULBACTAM SODIUM [Concomitant]
     Indication: PROPHYLAXIS
     Dosage: UNK
     Dates: start: 20100524, end: 20100526
  5. METOCLOPRAMIDE [Concomitant]
     Dosage: 10 MG, UNK
     Dates: start: 20100524, end: 20100524
  6. RAMIPRIL [Concomitant]
  7. RANITIDINE [Concomitant]
     Dosage: 50 MG, UNK
     Route: 042
     Dates: start: 20100525, end: 20100525

REACTIONS (2)
  - LIVER FUNCTION TEST ABNORMAL [None]
  - LIVER INJURY [None]
